FAERS Safety Report 7487423-1 (Version None)
Quarter: 2011Q2

REPORT INFORMATION
  Report Type: 
  Country: None (occurrence: None)
  Receive Date: 20110510
  Receipt Date: 20110428
  Transmission Date: 20111010
  Serious: Yes (Hospitalization)
  Sender: FDA-Public Use
  Company Number: 1000009230

PATIENT
  Age: 83 Year
  Sex: Female

DRUGS (9)
  1. LASIX (FUROSEMIDE)(TABLETS)(FUROSEMIDE) [Concomitant]
  2. ZYLORIC (ALLOPURINOL)(TABLETS)(ALLOPURINOL) [Concomitant]
  3. ZYPREXA (OLANZAPINE)(TABLETS)(OLANZAPINE) [Concomitant]
  4. ZOLOFT (SERTRALINE) (TABLETS) (SERTRALINE) [Concomitant]
  5. EXELON (RIVASTIGMINE)(POULTICE OR PATCH) (RIVASTIGMINE) [Concomitant]
  6. MEMANTINE [Suspect]
     Indication: DEMENTIA ALZHEIMER'S TYPE
     Dosage: 5 MG (5 MG,1 IN 1 D) ,ORAL
     Route: 048
     Dates: start: 20090911, end: 20090921
  7. BI EUGLUCON (METFORMIN, GLIBENCLAMIDE) (TABLETS)(METFORMIN, GLIBENCLAM [Concomitant]
  8. DIFFUMAL (THEOPHYLLINE)(TABLETS)(THEOPHYLLINE) [Concomitant]
  9. CABDIOASPIRIN (ACETYLSALICYLIC ACID)(TABLETS)(ACETYLSALICYLIC ACID) [Concomitant]

REACTIONS (1)
  - RESPIRATORY FAILURE [None]
